FAERS Safety Report 9974439 (Version 1)
Quarter: 2014Q1

REPORT INFORMATION
  Report Type: Report from Study
  Country: US (occurrence: US)
  Receive Date: 20140306
  Receipt Date: 20140306
  Transmission Date: 20141002
  Serious: No
  Sender: FDA-Public Use
  Company Number: US-ABBVIE-13P-163-1159074-00

PATIENT
  Age: 47 Year
  Sex: Female

DRUGS (10)
  1. HUMIRA [Suspect]
     Indication: CROHN^S DISEASE
     Dates: start: 20131011, end: 20131011
  2. HUMIRA [Suspect]
  3. IMURAN [Concomitant]
     Indication: CROHN^S DISEASE
     Dosage: 150MG DAILY
  4. SERTRALINE [Concomitant]
     Indication: DEPRESSION
     Dosage: 150MG DAILY
  5. SERTRALINE [Concomitant]
     Indication: ANXIETY
  6. AMLODIPINE BESYLATE [Concomitant]
     Indication: HYPERTENSION
     Dosage: 5MG DAILY
  7. LISINOPRIL [Concomitant]
     Indication: HYPERTENSION
     Dosage: 40MG DAILY
  8. VIT B12 [Concomitant]
     Indication: PRODUCT USED FOR UNKNOWN INDICATION
     Dosage: SHOT
  9. FOLIC ACID [Concomitant]
     Indication: CROHN^S DISEASE
     Dosage: 5MG DAILY
  10. FOLIC ACID [Concomitant]
     Indication: VITAMIN SUPPLEMENTATION

REACTIONS (6)
  - Pain [Not Recovered/Not Resolved]
  - Injection site pain [Not Recovered/Not Resolved]
  - Arthralgia [Not Recovered/Not Resolved]
  - Arthralgia [Not Recovered/Not Resolved]
  - Musculoskeletal pain [Not Recovered/Not Resolved]
  - Injection site discolouration [Not Recovered/Not Resolved]
